FAERS Safety Report 9915285 (Version 1)
Quarter: 2014Q1

REPORT INFORMATION
  Report Type: Spontaneous
  Country: FR (occurrence: FR)
  Receive Date: 20140221
  Receipt Date: 20140221
  Transmission Date: 20141002
  Serious: Yes (Death)
  Sender: FDA-Public Use
  Company Number: US-ASTRAZENECA-2014SE11214

PATIENT
  Age: 4 Month
  Sex: Male

DRUGS (3)
  1. SYNAGIS [Suspect]
     Indication: ANTIVIRAL PROPHYLAXIS
     Dosage: MONTHLY
     Route: 030
     Dates: start: 20131114, end: 20131114
  2. SYNAGIS [Suspect]
     Indication: ANTIVIRAL PROPHYLAXIS
     Dosage: MONTHLY
     Route: 030
     Dates: start: 20131219, end: 20131219
  3. SYNAGIS [Suspect]
     Indication: ANTIVIRAL PROPHYLAXIS
     Dosage: MONTHLY
     Route: 030
     Dates: start: 20140120, end: 20140120

REACTIONS (9)
  - Sudden death [Fatal]
  - Anaemia [Unknown]
  - Streptococcal infection [Unknown]
  - Herpes simplex [Unknown]
  - Enterovirus infection [Unknown]
  - Red blood cells CSF positive [Unknown]
  - CSF glucose abnormal [Unknown]
  - CSF protein abnormal [Unknown]
  - CSF lymphocyte count abnormal [Unknown]
